FAERS Safety Report 12397736 (Version 1)
Quarter: 2016Q2

REPORT INFORMATION
  Report Type: Spontaneous
  Country: US (occurrence: None)
  Receive Date: 20160523
  Receipt Date: 20160523
  Transmission Date: 20160815
  Serious: No
  Sender: FDA-Public Use
  Company Number: None

PATIENT
  Age: 50 Year
  Sex: Female
  Weight: 87.54 kg

DRUGS (7)
  1. COGEITENT (BENTZOPINE) [Concomitant]
  2. CONGETINT [Concomitant]
  3. CENTRIUM VITAMINS [Concomitant]
  4. PROBOTICS [Concomitant]
  5. HALDOL [Suspect]
     Active Substance: HALOPERIDOL
     Indication: SCHIZOAFFECTIVE DISORDER
     Dates: start: 20150901
  6. MYPEXIA [Concomitant]
  7. COGENTIN [Suspect]
     Active Substance: BENZTROPINE MESYLATE

REACTIONS (8)
  - Sensation of foreign body [None]
  - Apnoea [None]
  - Pruritus [None]
  - Pain in extremity [None]
  - Weight increased [None]
  - Dry mouth [None]
  - Muscle spasms [None]
  - Paraesthesia [None]

NARRATIVE: CASE EVENT DATE: 20151001
